FAERS Safety Report 18364446 (Version 1)
Quarter: 2020Q4

REPORT INFORMATION
  Report Type: Spontaneous
  Country: US (occurrence: US)
  Receive Date: 20201008
  Receipt Date: 20201008
  Transmission Date: 20210114
  Serious: Yes (Hospitalization)
  Sender: FDA-Public Use
  Company Number: None

PATIENT
  Age: 40 Year
  Sex: Female

DRUGS (3)
  1. PROZAC [Concomitant]
     Active Substance: FLUOXETINE HYDROCHLORIDE
  2. HUMIRA [Suspect]
     Active Substance: ADALIMUMAB
     Indication: CROHN^S DISEASE
     Dosage: 1 PEN (40MG) QWK SQ
     Route: 058
     Dates: start: 20190222
  3. SEASONAL IC [Concomitant]

REACTIONS (3)
  - Condition aggravated [None]
  - Product dose omission issue [None]
  - Product supply issue [None]

NARRATIVE: CASE EVENT DATE: 20200917
